FAERS Safety Report 15348455 (Version 2)
Quarter: 2018Q3

REPORT INFORMATION
  Report Type: Report from Study
  Country: JP (occurrence: JP)
  Receive Date: 20180904
  Receipt Date: 20180925
  Transmission Date: 20181010
  Serious: Yes (Life-Threatening)
  Sender: FDA-Public Use
  Company Number: JP-EISAI MEDICAL RESEARCH-EC-2018-044677

PATIENT
  Age: 15 Year
  Sex: Female
  Weight: 29 kg

DRUGS (20)
  1. OSPOLOT [Concomitant]
     Active Substance: SULTHIAME
  2. FYCOMPA [Suspect]
     Active Substance: PERAMPANEL
     Route: 048
     Dates: start: 20171003, end: 20180305
  3. ALLELOCK [Suspect]
     Active Substance: OLOPATADINE HYDROCHLORIDE
     Route: 048
     Dates: start: 20180209, end: 20180305
  4. ALLELOCK [Suspect]
     Active Substance: OLOPATADINE HYDROCHLORIDE
     Route: 048
     Dates: start: 20180306, end: 20180325
  5. L?CARBOCISTEINE [Concomitant]
     Active Substance: CARBOCYSTEINE
  6. PRANLUKAST [Concomitant]
     Active Substance: PRANLUKAST
  7. THYRADIN S [Concomitant]
     Active Substance: LEVOTHYROXINE SODIUM
  8. FAMOTIDINE. [Concomitant]
     Active Substance: FAMOTIDINE
  9. FYCOMPA [Suspect]
     Active Substance: PERAMPANEL
     Route: 048
     Dates: start: 20180306, end: 20180515
  10. ALLELOCK [Suspect]
     Active Substance: OLOPATADINE HYDROCHLORIDE
     Route: 048
     Dates: start: 20180326, end: 20180412
  11. CONTOL [Concomitant]
     Active Substance: CHLORDIAZEPOXIDE
  12. ROZEREM [Concomitant]
     Active Substance: RAMELTEON
  13. ALLELOCK [Suspect]
     Active Substance: OLOPATADINE HYDROCHLORIDE
     Indication: PRODUCT USED FOR UNKNOWN INDICATION
     Route: 048
     Dates: start: 20170602, end: 20170831
  14. TEGRETOL [Concomitant]
     Active Substance: CARBAMAZEPINE
  15. FYCOMPA [Suspect]
     Active Substance: PERAMPANEL
     Indication: PARTIAL SEIZURES
     Route: 048
     Dates: start: 20170711, end: 20171002
  16. FYCOMPA [Suspect]
     Active Substance: PERAMPANEL
     Route: 048
     Dates: start: 20180516, end: 20180518
  17. ALLELOCK [Suspect]
     Active Substance: OLOPATADINE HYDROCHLORIDE
     Route: 048
     Dates: start: 20170901, end: 20171130
  18. PHENOBAL [Concomitant]
     Active Substance: PHENOBARBITAL
  19. LIORESAL [Concomitant]
     Active Substance: BACLOFEN
  20. RIZABEN [Concomitant]
     Active Substance: TRANILAST

REACTIONS (1)
  - Interstitial lung disease [Not Recovered/Not Resolved]

NARRATIVE: CASE EVENT DATE: 20180403
